FAERS Safety Report 5634180-7 (Version None)
Quarter: 2008Q1

REPORT INFORMATION
  Report Type: 
  Country: None (occurrence: None)
  Receive Date: 20080221
  Receipt Date: 20080221
  Transmission Date: 20080703
  Serious: No
  Sender: FDA-Public Use
  Company Number: None

PATIENT
  Sex: Female

DRUGS (1)
  1. OPTIRAY 350 [Suspect]
     Indication: RENAL DISORDER
     Dosage: 100CC AC
     Dates: start: 20080207, end: 20080207

REACTIONS (1)
  - THROAT IRRITATION [None]
